FAERS Safety Report 13218985 (Version 2)
Quarter: 2018Q1

REPORT INFORMATION
  Report Type: Other
  Country: US (occurrence: US)
  Receive Date: 20170210
  Receipt Date: 20180130
  Transmission Date: 20180508
  Serious: No
  Sender: FDA-Public Use
  Company Number: US-ACORDA-ACO_127807_2016

PATIENT
  Sex: Male

DRUGS (1)
  1. AMPYRA [Suspect]
     Active Substance: DALFAMPRIDINE
     Indication: PRODUCT USED FOR UNKNOWN INDICATION
     Dosage: 10 MG, Q 12 HRS
     Route: 048
     Dates: start: 20150306

REACTIONS (7)
  - Progressive multiple sclerosis [Unknown]
  - Weight abnormal [Unknown]
  - Depression [Unknown]
  - Memory impairment [Unknown]
  - Asthenia [Unknown]
  - Multiple sclerosis [Unknown]
  - Drug dose omission [Unknown]
